FAERS Safety Report 24055171 (Version 1)
Quarter: 2024Q3

REPORT INFORMATION
  Report Type: Spontaneous
  Country: GB (occurrence: None)
  Receive Date: 20240705
  Receipt Date: 20240705
  Transmission Date: 20241016
  Serious: Yes (Other)
  Sender: ASTRAZENECA
  Company Number: 2024A153764

PATIENT
  Sex: Female

DRUGS (1)
  1. KOSELUGO [Suspect]
     Active Substance: SELUMETINIB
     Indication: Neurofibromatosis
     Route: 048

REACTIONS (10)
  - Condition aggravated [Unknown]
  - Neurofibroma [Unknown]
  - Bone hypertrophy [Unknown]
  - Decreased activity [Unknown]
  - Loss of consciousness [Unknown]
  - Cancer pain [Unknown]
  - Quality of life decreased [Unknown]
  - Asthenia [Unknown]
  - Vomiting [Unknown]
  - Fatigue [Unknown]
